FAERS Safety Report 22308220 (Version 1)
Quarter: 2023Q2

REPORT INFORMATION
  Report Type: Spontaneous
  Country: US (occurrence: None)
  Receive Date: 20230511
  Receipt Date: 20230511
  Transmission Date: 20230722
  Serious: No
  Sender: FDA-Public Use
  Company Number: US-ROCHE-3213085

PATIENT
  Sex: Female

DRUGS (1)
  1. OCREVUS [Suspect]
     Active Substance: OCRELIZUMAB
     Indication: Product used for unknown indication
     Route: 042

REACTIONS (6)
  - Eye swelling [Recovered/Resolved]
  - Oropharyngeal pain [Unknown]
  - Decreased appetite [Unknown]
  - Lip swelling [Recovered/Resolved]
  - Frequent bowel movements [Unknown]
  - Abdominal discomfort [Unknown]
